FAERS Safety Report 4628561-8 (Version None)
Quarter: 2005Q2

REPORT INFORMATION
  Report Type: 
  Country: None (occurrence: None)
  Receive Date: 20050404
  Receipt Date: 20050323
  Transmission Date: 20051028
  Serious: Yes (Hospitalization)
  Sender: FDA-Public Use
  Company Number: 2005PK00504

PATIENT
  Age: 74 Year
  Sex: Male
  Weight: 88 kg

DRUGS (6)
  1. METOPROLOL SUCCINATE [Suspect]
     Indication: ESSENTIAL HYPERTENSION
     Dosage: 100 MG DAILY PO
     Route: 048
     Dates: end: 20041217
  2. ISOPTIN [Suspect]
     Indication: ESSENTIAL HYPERTENSION
     Dosage: 240 MG DAILY PO
     Route: 048
     Dates: end: 20041217
  3. TRIATEC [Suspect]
     Indication: ESSENTIAL HYPERTENSION
     Dosage: 2.5 MG BID PO
     Route: 048
     Dates: start: 20041209
  4. SORTIS [Suspect]
     Indication: HYPERLIPIDAEMIA
     Dosage: 40 MG DAILY PO
     Route: 048
     Dates: start: 20041202
  5. MARCOUMAR [Concomitant]
  6. ZYPREXA [Concomitant]

REACTIONS (11)
  - BRADYCARDIA [None]
  - BRAIN NATRIURETIC PEPTIDE INCREASED [None]
  - DIZZINESS [None]
  - DRUG INTERACTION [None]
  - HYPOTENSION [None]
  - NAUSEA [None]
  - NODAL RHYTHM [None]
  - PALLOR [None]
  - PULSE ABSENT [None]
  - SOMNOLENCE [None]
  - SYNCOPE [None]
